FAERS Safety Report 5292181-5 (Version None)
Quarter: 2007Q2

REPORT INFORMATION
  Report Type: 
  Country: None (occurrence: None)
  Receive Date: 20070410
  Receipt Date: 20070328
  Transmission Date: 20071010
  Serious: Yes (Hospitalization, Disabling, Other)
  Sender: FDA-Public Use
  Company Number: US-ELI_LILLY_AND_COMPANY-US200609002964

PATIENT
  Age: 76 Year
  Sex: Female
  Weight: 77.097 kg

DRUGS (10)
  1. HUMULIN N [Suspect]
     Indication: DIABETES MELLITUS
     Dosage: 15 U, EACH EVENING
     Dates: start: 19910101, end: 20060101
  2. HUMULIN N [Suspect]
     Dosage: 20 U, EACH EVENING
     Dates: end: 20060401
  3. HUMULIN N [Suspect]
     Dosage: 25 U, DAILY (1/D)
     Dates: start: 20060101
  4. HUMULIN R [Suspect]
     Indication: DIABETES MELLITUS
     Dosage: UNK UNK, 2/D AS NEEDED
     Dates: start: 19910101, end: 20060401
  5. HUMULIN R [Suspect]
     Dosage: UNK, 3/D
     Dates: start: 20060101
  6. COUMADIN [Concomitant]
     Indication: CARDIAC DISORDER
     Dosage: UNK, UNKNOWN
  7. ALTACE [Concomitant]
     Indication: PROPHYLAXIS
     Dosage: UNK, UNKNOWN
  8. DIGOXIN [Concomitant]
     Indication: ATRIAL FIBRILLATION
     Dosage: .125 MG, DAILY (1/D)
  9. ASPIRIN [Concomitant]
     Indication: PROPHYLAXIS
     Dosage: UNK, UNKNOWN
  10. INSULIN [Concomitant]
     Indication: DIABETES MELLITUS
     Dosage: UNK, UNKNOWN

REACTIONS (30)
  - ACCIDENT [None]
  - ANXIETY [None]
  - ATRIAL FIBRILLATION [None]
  - BLOOD GLUCOSE DECREASED [None]
  - BLOOD GLUCOSE FLUCTUATION [None]
  - BLOOD GLUCOSE INCREASED [None]
  - CATARACT [None]
  - CONTUSION [None]
  - EMOTIONAL DISTRESS [None]
  - FALL [None]
  - HYPERSENSITIVITY [None]
  - IMPAIRED HEALING [None]
  - INSOMNIA [None]
  - JOINT DISLOCATION [None]
  - LOSS OF CONSCIOUSNESS [None]
  - MENOPAUSE [None]
  - NASOPHARYNGITIS [None]
  - NAUSEA [None]
  - NERVOUSNESS [None]
  - PAIN IN EXTREMITY [None]
  - PRURITUS [None]
  - PULMONARY MASS [None]
  - RASH [None]
  - SICK SINUS SYNDROME [None]
  - SKIN BURNING SENSATION [None]
  - STOMACH DISCOMFORT [None]
  - THERAPEUTIC RESPONSE DECREASED [None]
  - UPPER LIMB FRACTURE [None]
  - VOMITING [None]
  - WEIGHT DECREASED [None]
